FAERS Safety Report 4531415-9 (Version None)
Quarter: 2004Q4

REPORT INFORMATION
  Report Type: 
  Country: None (occurrence: None)
  Receive Date: 20041216
  Receipt Date: 20041210
  Transmission Date: 20050328
  Serious: Yes (Hospitalization)
  Sender: FDA-Public Use
  Company Number: KII-2004-0014253

PATIENT
  Age: 4 Year
  Sex: Female

DRUGS (1)
  1. OXYCONTIN [Suspect]
     Dates: start: 20040917

REACTIONS (5)
  - ACCIDENTAL EXPOSURE [None]
  - CONFUSIONAL STATE [None]
  - HALLUCINATION [None]
  - PRURITUS [None]
  - SOMNOLENCE [None]
